FAERS Safety Report 14262171 (Version 1)
Quarter: 2017Q4

REPORT INFORMATION
  Report Type: Report from Study
  Country: US (occurrence: US)
  Receive Date: 20171208
  Receipt Date: 20171208
  Transmission Date: 20180321
  Serious: No
  Sender: FDA-Public Use
  Company Number: US-KYOWAKIRIN-2016BKK107623

PATIENT

DRUGS (3)
  1. GRANISETRON [Suspect]
     Active Substance: GRANISETRON
     Dosage: 1 DF, 1X/WEEK
     Route: 062
     Dates: start: 2015
  2. GRANISETRON [Suspect]
     Active Substance: GRANISETRON
     Dosage: 1 DF, 1X/WEEK
     Route: 062
     Dates: start: 20161211
  3. GRANISETRON [Suspect]
     Active Substance: GRANISETRON
     Indication: IMPAIRED GASTRIC EMPTYING
     Dosage: 1 DF, 1X/WEEK
     Route: 062
     Dates: start: 20161207, end: 20161211

REACTIONS (3)
  - Product use in unapproved indication [Not Recovered/Not Resolved]
  - No adverse event [Unknown]
  - Product adhesion issue [Unknown]

NARRATIVE: CASE EVENT DATE: 2015
